FAERS Safety Report 6146077-7 (Version None)
Quarter: 2009Q2

REPORT INFORMATION
  Report Type: 
  Country: None (occurrence: None)
  Receive Date: 20090406
  Receipt Date: 20090406
  Transmission Date: 20091009
  Serious: Yes (Hospitalization)
  Sender: FDA-Public Use
  Company Number: None

PATIENT
  Sex: Female

DRUGS (2)
  1. ABRAXANE [Suspect]
     Indication: GASTRIC CANCER
     Dosage: 260MG/M2 Q21DAYS IV
     Route: 042
  2. VANDETANIB [Suspect]
     Indication: GASTRIC CANCER
     Dosage: 300MG QD PO
     Route: 048

REACTIONS (3)
  - ABDOMINAL PAIN [None]
  - NAUSEA [None]
  - VOMITING [None]
